FAERS Safety Report 8276697-5 (Version None)
Quarter: 2012Q2

REPORT INFORMATION
  Report Type: 
  Country: None (occurrence: None)
  Receive Date: 20120412
  Receipt Date: 20120412
  Transmission Date: 20120825
  Serious: Yes (Life-Threatening, Hospitalization, Other)
  Sender: FDA-Public Use
  Company Number: None

PATIENT
  Age: 39 Year
  Sex: Male
  Weight: 80.285 kg

DRUGS (1)
  1. CIPROFLOXACIN HYDROCHLORIDE [Suspect]
     Indication: LOCALISED INFECTION
     Route: 048
     Dates: start: 20110615, end: 20110815

REACTIONS (19)
  - GASTRIC DISORDER [None]
  - FEELING ABNORMAL [None]
  - IMPAIRED WORK ABILITY [None]
  - PARAESTHESIA [None]
  - CLOSTRIDIAL INFECTION [None]
  - ASTHENIA [None]
  - QUALITY OF LIFE DECREASED [None]
  - GAIT DISTURBANCE [None]
  - NEURALGIA [None]
  - CHEST PAIN [None]
  - NECK PAIN [None]
  - MEMORY IMPAIRMENT [None]
  - BURNING SENSATION [None]
  - GASTROINTESTINAL DISORDER [None]
  - MYALGIA [None]
  - HYPOAESTHESIA [None]
  - DIZZINESS [None]
  - HEADACHE [None]
  - VOMITING [None]
